FAERS Safety Report 6222020-7 (Version None)
Quarter: 2009Q2

REPORT INFORMATION
  Report Type: 
  Country: None (occurrence: None)
  Receive Date: 20090611
  Receipt Date: 20090604
  Transmission Date: 20091009
  Serious: Yes (Other)
  Sender: FDA-Public Use
  Company Number: US-JNJFOC-20090602027

PATIENT
  Age: 94 Year
  Sex: Female
  Weight: 51.26 kg

DRUGS (8)
  1. IMODIUM MULTI-SYMPTOM RELIEF [Suspect]
     Route: 048
  2. IMODIUM MULTI-SYMPTOM RELIEF [Suspect]
     Indication: DIARRHOEA
     Dosage: FOR A COUPLE YEARS
     Route: 048
  3. DIGOXIN [Concomitant]
     Indication: HYPERTENSION
  4. DILTIAZEM [Concomitant]
     Indication: CARDIAC DISORDER
  5. CLONIDINE [Concomitant]
     Indication: CARDIAC DISORDER
  6. HYDROCHLOROTHIAZIDE [Concomitant]
     Indication: FLUID RETENTION
     Dosage: HALF CAPLET DAILY
  7. SPIRONOLACTONE [Concomitant]
     Indication: DRUG USE FOR UNKNOWN INDICATION
  8. RANITIDINE [Concomitant]
     Indication: GASTROOESOPHAGEAL REFLUX DISEASE
     Dosage: 1 CAPLET TWICE A DAY

REACTIONS (3)
  - DYSURIA [None]
  - INCORRECT DRUG ADMINISTRATION DURATION [None]
  - RENAL FAILURE [None]
